FAERS Safety Report 7285951-5 (Version None)
Quarter: 2011Q1

REPORT INFORMATION
  Report Type: 
  Country: None (occurrence: None)
  Receive Date: 20110210
  Receipt Date: 20101025
  Transmission Date: 20110831
  Serious: No
  Sender: FDA-Public Use
  Company Number: US-BAYER-201023023BCC

PATIENT
  Sex: Female
  Weight: 84.091 kg

DRUGS (2)
  1. THYROID THERAPY [Concomitant]
  2. ALEVE [Suspect]
     Indication: PAIN
     Route: 048

REACTIONS (1)
  - NAUSEA [None]
